FAERS Safety Report 17739323 (Version 1)
Quarter: 2020Q2

REPORT INFORMATION
  Report Type: Spontaneous
  Country: US (occurrence: US)
  Receive Date: 20200430
  Receipt Date: 20200430
  Transmission Date: 20200714
  Serious: No
  Sender: FDA-Public Use
  Company Number: None

PATIENT
  Age: 73 Year
  Sex: Female

DRUGS (1)
  1. POMALYST [Suspect]
     Active Substance: POMALIDOMIDE
     Indication: PLASMA CELL MYELOMA
     Dosage: 2MG QD X 14/21 D ORAL
     Route: 048
     Dates: start: 20200330

REACTIONS (5)
  - Throat irritation [None]
  - Hypoaesthesia [None]
  - Peripheral swelling [None]
  - Swelling face [None]
  - Pruritus [None]

NARRATIVE: CASE EVENT DATE: 20200429
